FAERS Safety Report 22635399 (Version 1)
Quarter: 2023Q2

REPORT INFORMATION
  Report Type: Spontaneous
  Country: US (occurrence: None)
  Receive Date: 20230622
  Receipt Date: 20230622
  Transmission Date: 20230721
  Serious: Yes (Disabling, Other)
  Sender: FDA-Public Use
  Company Number: None

PATIENT
  Age: 36 Year
  Sex: Male
  Weight: 72 kg

DRUGS (3)
  1. GOLD [Suspect]
     Active Substance: GOLD
     Indication: Nonspecific reaction
     Route: 055
     Dates: start: 20230613, end: 20230621
  2. SEROQUEL [Concomitant]
     Active Substance: QUETIAPINE FUMARATE
  3. CONCERTA [Concomitant]
     Active Substance: METHYLPHENIDATE HYDROCHLORIDE

REACTIONS (7)
  - Heart rate increased [None]
  - Hyperhidrosis [None]
  - Confusional state [None]
  - Cyanosis [None]
  - Pallor [None]
  - Capillary nail refill test abnormal [None]
  - Hypotension [None]
